FAERS Safety Report 4799771-4 (Version None)
Quarter: 2005Q4

REPORT INFORMATION
  Report Type: 
  Country: None (occurrence: None)
  Receive Date: 20051012
  Receipt Date: 20051012
  Transmission Date: 20060501
  Serious: Yes (Hospitalization)
  Sender: FDA-Public Use
  Company Number: None

PATIENT
  Sex: Male
  Weight: 92.9874 kg

DRUGS (5)
  1. FLECAINIDE [Suspect]
     Indication: ATRIAL FIBRILLATION
     Dosage: 50MG  PO  BID  (THERAPY DATES: PRIOR TO ADMISSION)
     Route: 048
  2. ATENOLOL [Concomitant]
  3. COUMADIN [Concomitant]
  4. BACLOFEN [Concomitant]
  5. CLONAZEPAM [Concomitant]

REACTIONS (4)
  - GAIT DISTURBANCE [None]
  - MUSCLE DISORDER [None]
  - NEUROLOGICAL SYMPTOM [None]
  - POSTURE ABNORMAL [None]
